FAERS Safety Report 19991713 (Version 1)
Quarter: 2021Q4

REPORT INFORMATION
  Report Type: Spontaneous
  Country: FR (occurrence: FR)
  Receive Date: 20211025
  Receipt Date: 20211025
  Transmission Date: 20220303
  Serious: Yes (Other)
  Sender: FDA-Public Use
  Company Number: FR-MYLANLABS-2021M1075390

PATIENT
  Sex: Female

DRUGS (4)
  1. VALSARTAN [Suspect]
     Active Substance: VALSARTAN
     Indication: Product used for unknown indication
     Dosage: UNK
  2. AMLODIPINE BESYLATE [Suspect]
     Active Substance: AMLODIPINE BESYLATE
     Indication: Product used for unknown indication
     Dosage: UNK
  3. NICORANDIL [Suspect]
     Active Substance: NICORANDIL
     Indication: Product used for unknown indication
     Dosage: UNK
  4. BISOPROLOL [Suspect]
     Active Substance: BISOPROLOL
     Indication: Product used for unknown indication
     Dosage: UNK

REACTIONS (12)
  - Skin cancer [Unknown]
  - Faeces discoloured [Not Recovered/Not Resolved]
  - Acne [Unknown]
  - Chest discomfort [Recovered/Resolved]
  - Tinnitus [Recovered/Resolved]
  - Oxygen saturation abnormal [Recovering/Resolving]
  - Dyspnoea [Unknown]
  - Insomnia [Unknown]
  - Loss of consciousness [Unknown]
  - Dementia Alzheimer^s type [Unknown]
  - Anger [Unknown]
  - Headache [Recovered/Resolved]
